FAERS Safety Report 17719700 (Version 1)
Quarter: 2020Q2

REPORT INFORMATION
  Report Type: Report from Study
  Country: HU (occurrence: HU)
  Receive Date: 20200428
  Receipt Date: 20200428
  Transmission Date: 20200714
  Serious: Yes (Other)
  Sender: FDA-Public Use
  Company Number: HU-MYLANLABS-2020M1041795

PATIENT
  Age: 54 Year
  Sex: Female

DRUGS (4)
  1. MONTELUKAST [Suspect]
     Active Substance: MONTELUKAST SODIUM
     Indication: ASTHMA
     Dosage: 10 MILLIGRAM, QD, 10 MG, QD
     Route: 065
  2. AIRFLUSOL FORSPIRO [Suspect]
     Active Substance: FLUTICASONE PROPIONATE\SALMETEROL XINAFOATE
     Indication: ASTHMA
     Dosage: 250 UG, 2XQD
     Route: 055
     Dates: start: 20190508, end: 20191121
  3. FORMOTEROL [Suspect]
     Active Substance: FORMOTEROL
     Indication: PRODUCT USED FOR UNKNOWN INDICATION
     Dosage: UNK
     Route: 065
  4. CETIRIZINE [Suspect]
     Active Substance: CETIRIZINE HYDROCHLORIDE
     Indication: RHINITIS ALLERGIC
     Dosage: 1 DOSAGE FORM, QD, 1 DF, QD
     Route: 065

REACTIONS (5)
  - Cardiac disorder [Recovering/Resolving]
  - Rhinitis allergic [Unknown]
  - Drug hypersensitivity [Unknown]
  - Hypothyroidism [Unknown]
  - Palpitations [Recovered/Resolved]
